FAERS Safety Report 8158046-6 (Version None)
Quarter: 2012Q1

REPORT INFORMATION
  Report Type: 
  Country: None (occurrence: None)
  Receive Date: 20120222
  Receipt Date: 20120214
  Transmission Date: 20120608
  Serious: Yes (Other)
  Sender: FDA-Public Use
  Company Number: PHHY2011DE52818

PATIENT
  Sex: Female
  Weight: 54 kg

DRUGS (6)
  1. ZOMETA [Suspect]
     Dosage: 4 MG/5ML EVERY 4 WEEK
     Route: 042
     Dates: start: 20100401
  2. BELOC [Concomitant]
  3. LORAZEPAM [Concomitant]
  4. DIOVAN [Concomitant]
  5. OXAZEPAM [Concomitant]
  6. ZOPICLONE [Concomitant]

REACTIONS (1)
  - SUICIDE ATTEMPT [None]
